FAERS Safety Report 7952942-8 (Version None)
Quarter: 2011Q4

REPORT INFORMATION
  Report Type: 
  Country: None (occurrence: None)
  Receive Date: 20111201
  Receipt Date: 20111117
  Transmission Date: 20120403
  Serious: Yes (Hospitalization)
  Sender: FDA-Public Use
  Company Number: US-PERRIGO-11US010378

PATIENT
  Sex: Male
  Weight: 102.4 kg

DRUGS (2)
  1. IBUPROFEN AND DIPHENHYDRAMINE CITRATE [Suspect]
     Indication: TOOTHACHE
     Dosage: 2 PO ONLY
     Route: 048
     Dates: start: 20111116, end: 20111116
  2. IBUPROFEN AND DIPHENHYDRAMINE CITRATE [Suspect]
     Indication: HEADACHE

REACTIONS (4)
  - HYPERHIDROSIS [None]
  - HYPERTENSION [None]
  - ABDOMINAL PAIN UPPER [None]
  - CONDITION AGGRAVATED [None]
